FAERS Safety Report 8209884-2 (Version None)
Quarter: 2012Q1

REPORT INFORMATION
  Report Type: 
  Country: None (occurrence: None)
  Receive Date: 20120314
  Receipt Date: 20120301
  Transmission Date: 20120608
  Serious: Yes (Death, Other)
  Sender: FDA-Public Use
  Company Number: CA-ROCHE-1030136

PATIENT
  Sex: Male
  Weight: 68.1 kg

DRUGS (15)
  1. NITROGLYCERIN [Concomitant]
  2. METOPROLOL SUCCINATE [Concomitant]
  3. CALCIUM [Concomitant]
  4. ZOPICLONE [Concomitant]
  5. LIPITOR [Concomitant]
  6. PREDNISONE TAB [Concomitant]
  7. VITAMIN D [Concomitant]
  8. LASIX [Concomitant]
  9. MAGNESIUM GLUCONATE [Concomitant]
  10. ASPIRIN [Concomitant]
  11. AMIODARONE HYDROCHLORIDE [Suspect]
     Indication: CARDIAC DISORDER
     Route: 048
  12. ACTEMRA [Suspect]
     Indication: RHEUMATOID ARTHRITIS
     Route: 042
     Dates: start: 20110224
  13. RAMIPRIL [Concomitant]
     Indication: HYPERTENSION
  14. PANTOPRAZOLE [Concomitant]
  15. DOCUSATE SODIUM [Concomitant]
     Dosage: AS REQUIRED

REACTIONS (3)
  - PAIN IN EXTREMITY [None]
  - PULMONARY FIBROSIS [None]
  - MYOCARDIAL INFARCTION [None]
